FAERS Safety Report 6081139-4 (Version None)
Quarter: 2009Q1

REPORT INFORMATION
  Report Type: 
  Country: None (occurrence: None)
  Receive Date: 20090213
  Receipt Date: 20090203
  Transmission Date: 20090719
  Serious: Yes (Death, Hospitalization, Other)
  Sender: FDA-Public Use
  Company Number: 200911750GPV

PATIENT
  Age: 39 Year
  Sex: Male

DRUGS (17)
  1. FLUDARA [Suspect]
     Indication: B-CELL LYMPHOMA
     Dates: start: 20080201
  2. RITUXAN [Suspect]
     Indication: B-CELL LYMPHOMA
     Dates: start: 20080201
  3. CYCLOPHOSPHAMIDE [Suspect]
     Indication: B-CELL LYMPHOMA
     Dates: start: 20080201
  4. ADRIAMYCIN PFS [Concomitant]
  5. CYCLOPHOSPHAMIDE [Concomitant]
  6. VINDESINE (VINDESINE) [Concomitant]
  7. BLEOMYCIN SULFATE [Concomitant]
  8. PREDNISONE TAB [Concomitant]
  9. ETOPOSIDE [Concomitant]
  10. METHYLPREDNISOLONE [Concomitant]
  11. CYTARABINE [Concomitant]
  12. CISPLATIN [Concomitant]
  13. RITUXIMAB (RITUXIMAB) [Concomitant]
  14. CYCLOPHOSPHAMIDE [Concomitant]
  15. DOXORUBICIN HCL [Concomitant]
  16. VINCRISTINE [Concomitant]
  17. PREDNISOLONE [Concomitant]

REACTIONS (8)
  - APLASIA [None]
  - DIARRHOEA [None]
  - MALNUTRITION [None]
  - PLEURAL EFFUSION [None]
  - PLEURAL HAEMORRHAGE [None]
  - PYREXIA [None]
  - SEPSIS [None]
  - VARICELLA [None]
